FAERS Safety Report 6921281-6 (Version None)
Quarter: 2010Q3

REPORT INFORMATION
  Report Type: 
  Country: None (occurrence: None)
  Receive Date: 20100812
  Receipt Date: 20100802
  Transmission Date: 20110219
  Serious: Yes (Hospitalization)
  Sender: FDA-Public Use
  Company Number: B0587670A

PATIENT
  Sex: Female

DRUGS (1)
  1. FLOLAN [Suspect]
     Indication: PULMONARY HYPERTENSION
     Route: 042
     Dates: start: 20070101

REACTIONS (7)
  - ANXIETY [None]
  - BLOOD CORTISOL DECREASED [None]
  - BLOOD SODIUM DECREASED [None]
  - HEADACHE [None]
  - HYPOPHAGIA [None]
  - ISOLATED ADRENOCORTICOTROPIC HORMONE DEFICIENCY [None]
  - MALAISE [None]
